FAERS Safety Report 10306170 (Version 1)
Quarter: 2014Q3

REPORT INFORMATION
  Report Type: Spontaneous
  Country: US (occurrence: None)
  Receive Date: 20140714
  Receipt Date: 20140714
  Transmission Date: 20150326
  Serious: Yes (Disabling, Other)
  Sender: FDA-Public Use
  Company Number: None

PATIENT
  Age: 24 Year
  Sex: Female
  Weight: 61.24 kg

DRUGS (1)
  1. AMPHETAMINE SALT ER [Suspect]
     Active Substance: AMPHETAMINE
     Indication: ATTENTION DEFICIT/HYPERACTIVITY DISORDER
     Route: 048
     Dates: start: 20130124, end: 20130213

REACTIONS (13)
  - Ill-defined disorder [None]
  - Burning sensation [None]
  - Chest pain [None]
  - Vision blurred [None]
  - Anxiety [None]
  - Dizziness [None]
  - Irritability [None]
  - Social problem [None]
  - Muscle spasms [None]
  - Nausea [None]
  - Confusional state [None]
  - Drug effect decreased [None]
  - Product substitution issue [None]

NARRATIVE: CASE EVENT DATE: 20130211
